FAERS Safety Report 9469775 (Version 3)
Quarter: 2013Q3

REPORT INFORMATION
  Report Type: Report from Study
  Country: US (occurrence: US)
  Receive Date: 20130822
  Receipt Date: 20130913
  Transmission Date: 20140515
  Serious: Yes (Hospitalization)
  Sender: FDA-Public Use
  Company Number: PHHO2012US018604

PATIENT
  Age: 63 Year
  Sex: Male

DRUGS (24)
  1. ZOMETA [Suspect]
     Indication: PLASMA CELL MYELOMA
     Dosage: 40 MG, UNK
     Route: 042
  2. LENALIDOMIDE [Concomitant]
     Indication: PLASMA CELL MYELOMA
     Dosage: 10 MG, QD
     Route: 048
     Dates: start: 20121019
  3. ELOTUZUMAB [Concomitant]
     Indication: PLASMA CELL MYELOMA
     Dosage: 727 MG, UNK
     Route: 042
     Dates: start: 20121019
  4. DEXAMETHASONE [Concomitant]
     Indication: PLASMA CELL MYELOMA
     Dosage: 28 MG, UNK
     Route: 048
     Dates: start: 20121018
  5. ATORVASTATIN [Concomitant]
     Dosage: UNK
     Dates: start: 20120929
  6. FENTANYL [Concomitant]
     Dosage: UNK
     Dates: start: 20121019
  7. DILTIAZEM [Concomitant]
     Dosage: UNK
     Dates: start: 20120929
  8. POTASSIUM CHLORIDE [Concomitant]
     Dosage: UNK
     Dates: start: 20121119
  9. MORPHINE SULFATE [Concomitant]
     Dosage: UNK
     Dates: start: 20120928
  10. PROTONIX [Concomitant]
     Dosage: UNK
     Dates: start: 20121018
  11. COLACE [Concomitant]
     Dosage: UNK
     Dates: start: 20121002
  12. BENADRYL                           /00647601/ [Concomitant]
     Dosage: UNK
     Dates: start: 20121201, end: 20121201
  13. NAPROSYN [Concomitant]
     Dosage: UNK
     Dates: start: 20121109, end: 20130417
  14. LASIX [Concomitant]
     Dosage: UNK
     Dates: start: 20121119
  15. IMODIUM [Concomitant]
     Dosage: UNK
     Dates: start: 20121122, end: 20130120
  16. MIRALAX [Concomitant]
     Dosage: UNK
     Dates: start: 20121001
  17. NEURONTIN [Concomitant]
     Dosage: UNK
     Dates: start: 20121001
  18. REMERON [Concomitant]
     Dosage: UNK
     Dates: start: 20120929
  19. ASPIRIN [Concomitant]
     Dosage: UNK
     Dates: start: 20121008, end: 20130425
  20. NYSTATIN [Concomitant]
     Dosage: UNK
     Dates: start: 20121214, end: 20121221
  21. ZOFRAN [Concomitant]
     Dosage: UNK
     Dates: start: 20121228
  22. RIVAROXABAN [Concomitant]
     Dosage: UNK
     Dates: start: 20130416
  23. METFORMIN [Concomitant]
     Dosage: UNK
     Dates: start: 20130322
  24. ATIVAN [Concomitant]
     Dosage: UNK
     Dates: start: 20121228

REACTIONS (1)
  - Atrial fibrillation [Recovered/Resolved]
